FAERS Safety Report 14975369 (Version 1)
Quarter: 2018Q2

REPORT INFORMATION
  Report Type: Spontaneous
  Country: CZ (occurrence: CZ)
  Receive Date: 20180605
  Receipt Date: 20180605
  Transmission Date: 20180711
  Serious: Yes (Other)
  Sender: FDA-Public Use
  Company Number: CZ-PFIZER INC-2018225684

PATIENT
  Age: 61 Year
  Sex: Female

DRUGS (4)
  1. CLOPIDOGREL [Concomitant]
     Active Substance: CLOPIDOGREL BISULFATE
     Indication: THROMBOSIS PROPHYLAXIS
     Dosage: UNK
  2. PANTOPRAZOLE [Concomitant]
     Active Substance: PANTOPRAZOLE
     Dosage: UNK
  3. XALATAN [Suspect]
     Active Substance: LATANOPROST
     Indication: GLAUCOMA
     Dosage: 1X DAILY 1 DROP IN EYE, APPLY IN THE EVENING
     Route: 031
     Dates: start: 20180222, end: 20180410
  4. ANOPYRIN [Concomitant]
     Active Substance: ASPIRIN
     Indication: THROMBOSIS PROPHYLAXIS
     Dosage: UNK

REACTIONS (9)
  - Myalgia [Recovered/Resolved]
  - Arthralgia [Recovered/Resolved]
  - Irritability [Recovered/Resolved]
  - Mood altered [Recovered/Resolved]
  - Nausea [Recovering/Resolving]
  - Cough [Recovering/Resolving]
  - Fatigue [Recovered/Resolved]
  - Vascular rupture [Recovered/Resolved]
  - Vision blurred [Recovered/Resolved]

NARRATIVE: CASE EVENT DATE: 20180303
